FAERS Safety Report 11934970 (Version 2)
Quarter: 2016Q1

REPORT INFORMATION
  Report Type: Spontaneous
  Country: US (occurrence: US)
  Receive Date: 20160121
  Receipt Date: 20160302
  Transmission Date: 20160526
  Serious: No
  Sender: FDA-Public Use
  Company Number: US-JNJFOC-20160107613

PATIENT
  Age: 25 Year
  Sex: Female
  Weight: 77.11 kg

DRUGS (1)
  1. ORTHO TRI CYCLEN LO [Suspect]
     Active Substance: ETHINYL ESTRADIOL\NORGESTIMATE
     Indication: DYSMENORRHOEA
     Route: 048
     Dates: start: 20151227, end: 20160110

REACTIONS (9)
  - Mood altered [Not Recovered/Not Resolved]
  - Agitation [Not Recovered/Not Resolved]
  - Product use issue [Unknown]
  - Irritability [Unknown]
  - Breast enlargement [Not Recovered/Not Resolved]
  - Breast pain [Not Recovered/Not Resolved]
  - Off label use [Unknown]
  - Breast swelling [Unknown]
  - Cyst [Unknown]

NARRATIVE: CASE EVENT DATE: 20160103
